FAERS Safety Report 19032807 (Version 1)
Quarter: 2021Q1

REPORT INFORMATION
  Report Type: Spontaneous
  Country: US (occurrence: US)
  Receive Date: 20210319
  Receipt Date: 20210319
  Transmission Date: 20210420
  Serious: No
  Sender: FDA-Public Use
  Company Number: US-ALKERMES INC.-ALK-2021-001245

PATIENT
  Sex: Female

DRUGS (2)
  1. VIVITROL [Suspect]
     Active Substance: NALTREXONE
     Indication: PRODUCT USED FOR UNKNOWN INDICATION
     Dosage: 380 MILLIGRAM, QMO
     Route: 030
     Dates: start: 202103
  2. VIVITROL [Suspect]
     Active Substance: NALTREXONE
     Dosage: 380 MILLIGRAM, QMO
     Route: 030

REACTIONS (8)
  - Substance abuse [Not Recovered/Not Resolved]
  - Feeling cold [Not Recovered/Not Resolved]
  - Flushing [Not Recovered/Not Resolved]
  - Feeling hot [Not Recovered/Not Resolved]
  - Sensory loss [Not Recovered/Not Resolved]
  - Alcohol abuse [Not Recovered/Not Resolved]
  - Drug abuse [Not Recovered/Not Resolved]
  - Rhinalgia [Not Recovered/Not Resolved]

NARRATIVE: CASE EVENT DATE: 20210310
